FAERS Safety Report 7112541-7 (Version None)
Quarter: 2010Q4

REPORT INFORMATION
  Report Type: 
  Country: None (occurrence: None)
  Receive Date: 20101119
  Receipt Date: 20101110
  Transmission Date: 20110411
  Serious: Yes (Hospitalization, Other)
  Sender: FDA-Public Use
  Company Number: US-ELI_LILLY_AND_COMPANY-US201010005973

PATIENT
  Sex: Male
  Weight: 79.365 kg

DRUGS (9)
  1. PRASUGREL HYDROCHLORIDE [Suspect]
     Indication: ACUTE CORONARY SYNDROME
     Dosage: 10 MG, DAILY (1/D)
     Dates: start: 20100409
  2. ASPIRIN [Concomitant]
     Dosage: 325 MG, DAILY (1/D)
  3. ASPIRIN [Concomitant]
     Dosage: 81 MG, 2/D
  4. ACTOPLUS MET [Concomitant]
     Indication: DIABETES MELLITUS
     Dosage: UNK, 2/D
     Route: 048
  5. ATENOLOL [Concomitant]
     Indication: ANGINA PECTORIS
     Dosage: 100 MG, AS NEEDED
     Route: 048
  6. CRESTOR [Concomitant]
     Indication: HYPERLIPIDAEMIA
     Dosage: 10 MG, DAILY (1/D)
     Route: 048
  7. GLIMEPIRIDE [Concomitant]
     Indication: DIABETES MELLITUS
     Dosage: 4 MG, DAILY (1/D)
     Route: 048
  8. LOVAZA [Concomitant]
     Indication: HYPERLIPIDAEMIA
     Dosage: 4000 MG, 2/D
     Route: 048
  9. PLAVIX [Concomitant]
     Dosage: 75 MG, DAILY (1/D)
     Route: 048
     Dates: end: 20100408

REACTIONS (1)
  - ANGINA PECTORIS [None]
